FAERS Safety Report 25361543 (Version 1)
Quarter: 2025Q2

REPORT INFORMATION
  Report Type: Spontaneous
  Country: IN (occurrence: IN)
  Receive Date: 20250527
  Receipt Date: 20250527
  Transmission Date: 20250717
  Serious: Yes (Hospitalization, Other)
  Sender: LEGACY PHARMACEUTICAL PACKAGING
  Company Number: IN-LEGACY PHARMA INC. SEZC-LGP202505-000157

PATIENT
  Age: 25 Year
  Sex: Female
  Weight: 55 kg

DRUGS (6)
  1. ATROPINE SULFATE\DIFENOXIN HYDROCHLORIDE [Suspect]
     Active Substance: ATROPINE SULFATE\DIFENOXIN HYDROCHLORIDE
     Indication: Chemical poisoning
     Dosage: INJECTION
     Route: 042
  2. PANTOPRAZOLE [Concomitant]
     Active Substance: PANTOPRAZOLE
     Indication: Respiratory depression
     Dosage: 40 MILLIGRAM, DAILY
     Route: 042
  3. METHYLCOBALAMIN [Concomitant]
     Active Substance: METHYLCOBALAMIN
     Indication: Respiratory depression
     Dosage: 5 MILLIGRAM, DAILY
     Route: 042
  4. CEFTRIAXONE [Concomitant]
     Active Substance: CEFTRIAXONE
     Indication: Respiratory depression
     Route: 042
  5. PRALIDOXIME [Concomitant]
     Active Substance: PRALIDOXIME
     Indication: Respiratory depression
  6. LORAZEPAM [Concomitant]
     Active Substance: LORAZEPAM
     Indication: Respiratory depression
     Dosage: 1 MILLIGRAM, DAILY

REACTIONS (13)
  - Substance-induced psychotic disorder [Unknown]
  - Delirium [Unknown]
  - Depressed level of consciousness [Unknown]
  - Agitation [Unknown]
  - Mydriasis [Unknown]
  - Pupillary light reflex tests abnormal [Unknown]
  - Muscular weakness [Unknown]
  - Crepitations [Unknown]
  - Miosis [Unknown]
  - Mental status changes [Unknown]
  - Tachycardia [Unknown]
  - Vision blurred [Unknown]
  - Product use in unapproved indication [Unknown]
